FAERS Safety Report 22615746 (Version 3)
Quarter: 2023Q4

REPORT INFORMATION
  Report Type: Spontaneous
  Country: JP (occurrence: JP)
  Receive Date: 20230619
  Receipt Date: 20231102
  Transmission Date: 20240110
  Serious: Yes (Other)
  Sender: FDA-Public Use
  Company Number: JP-GLAXOSMITHKLINE-JP2023JPN082542

PATIENT

DRUGS (7)
  1. BENLYSTA [Suspect]
     Active Substance: BELIMUMAB
     Indication: Systemic lupus erythematosus
     Dosage: 520 MG AT 2-WEEK INTERVALS
  2. BENLYSTA [Suspect]
     Active Substance: BELIMUMAB
     Indication: General physical health deterioration
     Dosage: 520 MG EVERY 4 WEEKS
  3. PREDNISOLONE [Concomitant]
     Active Substance: PREDNISOLONE
     Dosage: 6 MG, QD
  4. PREDNISOLONE [Concomitant]
     Active Substance: PREDNISOLONE
     Dosage: UNK
  5. HYDROXYCHLOROQUINE SULFATE [Concomitant]
     Active Substance: HYDROXYCHLOROQUINE SULFATE
     Dosage: 200 MG, QD
  6. TACROLIMUS [Concomitant]
     Active Substance: TACROLIMUS
     Dosage: 0.5 MG, QD
  7. MYCOPHENOLATE MOFETIL [Concomitant]
     Active Substance: MYCOPHENOLATE MOFETIL
     Dosage: 2000 MG, QD

REACTIONS (11)
  - Mycobacterium haemophilum infection [Recovering/Resolving]
  - Skin bacterial infection [Recovering/Resolving]
  - Cellulitis [Recovering/Resolving]
  - Erythema [Recovering/Resolving]
  - Pain in extremity [Recovering/Resolving]
  - Peripheral swelling [Recovering/Resolving]
  - Rash papular [Recovering/Resolving]
  - Skin mass [Recovering/Resolving]
  - Granuloma [Recovering/Resolving]
  - Abscess [Recovering/Resolving]
  - Pustule [Recovering/Resolving]
